FAERS Safety Report 5158172-X (Version None)
Quarter: 2006Q4

REPORT INFORMATION
  Report Type: 
  Country: None (occurrence: None)
  Receive Date: 20061120
  Receipt Date: 20061120
  Transmission Date: 20070319
  Serious: Yes (Other)
  Sender: FDA-Public Use
  Company Number: None

PATIENT
  Sex: Female

DRUGS (1)
  1. CORRECTOL [Suspect]
     Indication: DRUG USE FOR UNKNOWN INDICATION
     Dosage: 2 DF;ONCE; PO
     Route: 048

REACTIONS (12)
  - COLD SWEAT [None]
  - CONTUSION [None]
  - DIARRHOEA [None]
  - DRUG HYPERSENSITIVITY [None]
  - ELECTROLYTE IMBALANCE [None]
  - FALL [None]
  - HEAD INJURY [None]
  - LOSS OF CONSCIOUSNESS [None]
  - MUSCLE SPASMS [None]
  - PERIORBITAL HAEMATOMA [None]
  - SKIN LACERATION [None]
  - VOMITING [None]
